FAERS Safety Report 24530358 (Version 1)
Quarter: 2024Q4

REPORT INFORMATION
  Report Type: Report from Study
  Country: US (occurrence: US)
  Receive Date: 20241021
  Receipt Date: 20241021
  Transmission Date: 20250114
  Serious: Yes (Other)
  Sender: ABBVIE
  Company Number: US-ABBVIE-5971702

PATIENT
  Sex: Male

DRUGS (1)
  1. SKYRIZI [Suspect]
     Active Substance: RISANKIZUMAB-RZAA
     Indication: Crohn^s disease
     Dosage: SINGLE DOSE VIAL, FORM STRENGTH: 600 MG/10 ML, WEEK 0
     Route: 042

REACTIONS (4)
  - Pulmonary necrosis [Unknown]
  - Pulmonary mass [Unknown]
  - Pneumonia [Unknown]
  - Respiratory disorder [Unknown]
